FAERS Safety Report 5572936-X (Version None)
Quarter: 2007Q4

REPORT INFORMATION
  Report Type: 
  Country: None (occurrence: None)
  Receive Date: 20071219
  Receipt Date: 20071219
  Transmission Date: 20080405
  Serious: No
  Sender: FDA-Public Use
  Company Number: None

PATIENT
  Age: 22 Year
  Sex: Male
  Weight: 72.5755 kg

DRUGS (6)
  1. ZIPRASIDONE HCL [Suspect]
     Dosage: 80MG PO
     Route: 048
  2. TRAZODONE HCL [Concomitant]
  3. PEPTO BISMOL [Concomitant]
  4. ALPRAZOLAM EXTENDED-RELEASE [Concomitant]
  5. TOPIRAMATE [Concomitant]
  6. LORATADINE [Concomitant]

REACTIONS (2)
  - RETCHING [None]
  - VOMITING [None]
